FAERS Safety Report 7408804-8 (Version None)
Quarter: 2011Q2

REPORT INFORMATION
  Report Type: 
  Country: None (occurrence: None)
  Receive Date: 20110412
  Receipt Date: 20110401
  Transmission Date: 20111010
  Serious: Yes (Death, Life-Threatening, Hospitalization)
  Sender: FDA-Public Use
  Company Number: FR-SANOFI-AVENTIS-2011SA015909

PATIENT
  Age: 72 Year
  Sex: Male

DRUGS (6)
  1. ELIGARD [Suspect]
     Indication: PROSTATE CANCER
     Route: 030
     Dates: start: 20100706, end: 20100706
  2. CORDARONE [Concomitant]
     Indication: ARRHYTHMIA
     Route: 048
  3. FUROSEMIDE [Concomitant]
     Route: 048
  4. PLAVIX [Concomitant]
     Indication: ARRHYTHMIA
     Route: 048
  5. NITRODERM [Concomitant]
     Indication: MYOCARDIAL INFARCTION
     Route: 062
  6. CARDENSIEL [Concomitant]
     Route: 048

REACTIONS (3)
  - DISEASE PROGRESSION [None]
  - INCORRECT ROUTE OF DRUG ADMINISTRATION [None]
  - DRUG INEFFECTIVE [None]
